FAERS Safety Report 5314109-1 (Version None)
Quarter: 2007Q2

REPORT INFORMATION
  Report Type: 
  Country: None (occurrence: None)
  Receive Date: 20070501
  Receipt Date: 20070417
  Transmission Date: 20071010
  Serious: Yes (Other)
  Sender: FDA-Public Use
  Company Number: NO-PFIZER INC-2007034395

PATIENT
  Age: 48 Year
  Sex: Female

DRUGS (4)
  1. XANOR DEPOT [Suspect]
     Indication: PANIC REACTION
     Route: 048
  2. XANOR DEPOT [Suspect]
     Indication: ANXIETY
  3. ZYPREXA [Suspect]
     Indication: MOOD SWINGS
  4. REMERON [Concomitant]

REACTIONS (3)
  - DEPRESSION [None]
  - MORBID THOUGHTS [None]
  - SLEEP DISORDER [None]
